FAERS Safety Report 9017370 (Version 1)
Quarter: 2013Q1

REPORT INFORMATION
  Report Type: Spontaneous
  Country: US (occurrence: US)
  Receive Date: 20130117
  Receipt Date: 20130117
  Transmission Date: 20140127
  Serious: Yes (Death, Hospitalization, Other)
  Sender: FDA-Public Use
  Company Number: US-BAYER-2013-004403

PATIENT
  Age: 28 Year
  Sex: Female
  Weight: 85.71 kg

DRUGS (5)
  1. YASMIN [Suspect]
  2. QUININE SULFATE [Concomitant]
  3. MOTRIN [Concomitant]
  4. VICODIN [Concomitant]
  5. ALBUTEROL [Concomitant]

REACTIONS (4)
  - Deep vein thrombosis [Recovered/Resolved]
  - Pulmonary embolism [None]
  - Pancreatitis [None]
  - Arrhythmia [Fatal]
